FAERS Safety Report 14530465 (Version 1)
Quarter: 2018Q1

REPORT INFORMATION
  Report Type: Spontaneous
  Country: US (occurrence: US)
  Receive Date: 20180214
  Receipt Date: 20180214
  Transmission Date: 20180509
  Serious: Yes (Hospitalization)
  Sender: FDA-Public Use
  Company Number: US-BIOCOMPATIBLES UK LTD-2018BTG01489

PATIENT
  Age: 66 Year
  Sex: Male
  Weight: 104 kg

DRUGS (5)
  1. VORAXAZE [Suspect]
     Active Substance: GLUCARPIDASE
     Indication: TOXICITY TO VARIOUS AGENTS
     Dosage: 5000 UNITS (5 VIALS), UNK
     Dates: start: 20180128
  2. METHOTREXATE. [Suspect]
     Active Substance: METHOTREXATE
     Indication: CENTRAL NERVOUS SYSTEM LYMPHOMA
     Dosage: 8 G/M2
     Dates: start: 20180124
  3. TEMOZOLOMIDE. [Concomitant]
     Active Substance: TEMOZOLOMIDE
     Indication: CENTRAL NERVOUS SYSTEM LYMPHOMA
  4. VORAXAZE [Suspect]
     Active Substance: GLUCARPIDASE
     Dosage: UNK
  5. RITUXIMAB. [Concomitant]
     Active Substance: RITUXIMAB
     Indication: CENTRAL NERVOUS SYSTEM LYMPHOMA

REACTIONS (4)
  - Fluid retention [Unknown]
  - Rebound effect [Unknown]
  - Laboratory test interference [Unknown]
  - Underdose [Unknown]

NARRATIVE: CASE EVENT DATE: 201801
